FAERS Safety Report 4678699-4 (Version None)
Quarter: 2005Q2

REPORT INFORMATION
  Report Type: 
  Country: None (occurrence: None)
  Receive Date: 20050531
  Receipt Date: 20050517
  Transmission Date: 20051028
  Serious: Yes (Other)
  Sender: FDA-Public Use
  Company Number: 2005076246

PATIENT
  Sex: Male

DRUGS (1)
  1. LISTERINE (MENTHOL, METHYL SALICYLATE, EUCALYPTOL, THYMOL) [Suspect]
     Dosage: 2-3 TIMES DAILY, ORAL
     Route: 048
     Dates: start: 20050401

REACTIONS (3)
  - BLOOD PRESSURE DECREASED [None]
  - CONVULSION [None]
  - DRUG ADMINISTRATION ERROR [None]
